FAERS Safety Report 12332538 (Version 2)
Quarter: 2016Q2

REPORT INFORMATION
  Report Type: Other
  Country: US (occurrence: US)
  Receive Date: 20160504
  Receipt Date: 20160603
  Transmission Date: 20160815
  Serious: Yes (Hospitalization, Other)
  Sender: FDA-Public Use
  Company Number: US-SHIRE-US201605016

PATIENT
  Age: 47 Year
  Sex: Female
  Weight: 68.27 kg

DRUGS (7)
  1. NATPARA (PARATHYROID HORMONE) [Suspect]
     Active Substance: PARATHYROID HORMONE
     Indication: HYPOPARATHYROIDISM
     Dosage: UNK
  2. ZANTAC [Concomitant]
     Active Substance: RANITIDINE HYDROCHLORIDE
     Indication: GASTROOESOPHAGEAL REFLUX DISEASE
     Dosage: 150 MG, A DAY
     Route: 048
     Dates: start: 201510
  3. CALCITRIOL. [Concomitant]
     Active Substance: CALCITRIOL
     Indication: HYPOPARATHYROIDISM
     Dosage: 0.25 ?G, UP TO 6 CAPS DAILY
     Route: 048
     Dates: start: 201312, end: 20160310
  4. CITRACAL                           /00751520/ [Concomitant]
     Active Substance: CALCIUM CITRATE
     Indication: HYPOPARATHYROIDISM
     Dosage: 200 MG, 6 TABS DAILY
     Route: 048
     Dates: start: 201312
  5. SYNTHROID [Concomitant]
     Active Substance: LEVOTHYROXINE SODIUM
     Indication: HYPOPARATHYROIDISM
     Dosage: 100 ?G, A DAY
     Route: 048
     Dates: start: 2010
  6. NATPARA (PARATHYROID HORMONE) [Suspect]
     Active Substance: PARATHYROID HORMONE
     Indication: HYPOPARATHYROIDISM
     Dosage: 25 TO 75 ?G TITRATION
     Route: 058
     Dates: start: 20160117
  7. NATPARA (PARATHYROID HORMONE) [Suspect]
     Active Substance: PARATHYROID HORMONE
     Dosage: 25 TO 75 ?G TITRATION
     Route: 058
     Dates: start: 20150624, end: 20151231

REACTIONS (12)
  - Drug effect incomplete [Unknown]
  - Blood calcium abnormal [Recovering/Resolving]
  - Blood thyroid stimulating hormone decreased [Unknown]
  - Tremor [Recovering/Resolving]
  - Device leakage [Unknown]
  - Drug ineffective [Unknown]
  - Renal impairment [Recovering/Resolving]
  - Blood calcium increased [Recovering/Resolving]
  - Trousseau^s sign [Unknown]
  - Injection site haemorrhage [Recovered/Resolved]
  - Product contamination with body fluid [Recovered/Resolved]
  - Tetany [Not Recovered/Not Resolved]

NARRATIVE: CASE EVENT DATE: 20151122
